FAERS Safety Report 7075446-6 (Version None)
Quarter: 2010Q4

REPORT INFORMATION
  Report Type: 
  Country: None (occurrence: None)
  Receive Date: 20101030
  Receipt Date: 20100913
  Transmission Date: 20110411
  Serious: No
  Sender: FDA-Public Use
  Company Number: US-WYE-H17496710

PATIENT
  Sex: Female
  Weight: 76.73 kg

DRUGS (4)
  1. PRISTIQ [Suspect]
     Indication: DEPRESSION
     Dates: start: 20100801
  2. PRILOSEC [Concomitant]
  3. VITAMINS [Concomitant]
  4. LEVOTHYROXINE [Concomitant]

REACTIONS (5)
  - FEELING JITTERY [None]
  - HYPERVIGILANCE [None]
  - INSOMNIA [None]
  - IRRITABILITY [None]
  - PALPITATIONS [None]
